FAERS Safety Report 4541905-0 (Version None)
Quarter: 2004Q4

REPORT INFORMATION
  Report Type: 
  Country: None (occurrence: None)
  Receive Date: 20041227
  Receipt Date: 20041213
  Transmission Date: 20050328
  Serious: Yes (Congenital Anomaly)
  Sender: FDA-Public Use
  Company Number: S04-UKI-08233-02

PATIENT
  Age: 0 Day
  Sex: Male
  Weight: 3.98 kg

DRUGS (2)
  1. CITALOPRAM HYDROBROMIDE [Suspect]
  2. MEBEVERINE [Concomitant]

REACTIONS (3)
  - CARDIAC MURMUR [None]
  - DRUG EXPOSURE DURING PREGNANCY [None]
  - HEART DISEASE CONGENITAL [None]
